FAERS Safety Report 21279938 (Version 1)
Quarter: 2022Q3

REPORT INFORMATION
  Report Type: Spontaneous
  Country: US (occurrence: None)
  Receive Date: 20220831
  Receipt Date: 20220831
  Transmission Date: 20221027
  Serious: No
  Sender: FDA-Public Use
  Company Number: None

PATIENT
  Age: 27 Year
  Sex: Male
  Weight: 110.22 kg

DRUGS (15)
  1. TEMOZOLOMIDE [Suspect]
     Active Substance: TEMOZOLOMIDE
     Indication: Brain neoplasm malignant
     Dosage: FREQUENCY : DAILY;?
     Dates: start: 202207
  2. ACETAMINOPHEN [Concomitant]
     Active Substance: ACETAMINOPHEN
  3. BOWELLIA [Concomitant]
  4. DESMOPRESSIN [Concomitant]
     Active Substance: DESMOPRESSIN
  5. DEXAMETHASONE [Concomitant]
  6. FAMOTIDINE [Concomitant]
  7. IBUPROFEN [Concomitant]
  8. LEVETIRACETAM [Concomitant]
  9. LEVOTHYROXINE [Concomitant]
  10. LORATADINE [Concomitant]
  11. MULTIVITAMIN [Concomitant]
  12. ONDANSETRON [Concomitant]
     Active Substance: ONDANSETRON
  13. SOLU-CORTEF [Concomitant]
     Active Substance: HYDROCORTISONE SODIUM SUCCINATE
  14. TESTOSTERONE [Concomitant]
  15. WARFARIN [Concomitant]
     Active Substance: WARFARIN

REACTIONS (1)
  - Disease progression [None]
